FAERS Safety Report 7439547-2 (Version None)
Quarter: 2011Q2

REPORT INFORMATION
  Report Type: 
  Country: None (occurrence: None)
  Receive Date: 20110427
  Receipt Date: 20110426
  Transmission Date: 20111010
  Serious: Yes (Other)
  Sender: FDA-Public Use
  Company Number: US-RB-021137-11

PATIENT
  Sex: Female
  Weight: 99 kg

DRUGS (10)
  1. VITAMIN E [Concomitant]
  2. DIPHENOXYLATE/ATROP [Concomitant]
     Indication: NAUSEA
     Dosage: AS NEEDED
  3. MUCINEX D [Suspect]
     Dosage: TWO TABLETS TAKEN PER DAY, 14 TABLETS TAKEN IN TOTAL UNTIL 09-FEB-2011
     Route: 048
  4. INSULIN [Concomitant]
     Dosage: TAKEN MORNING AND NIGHT
  5. LEXAPRO [Concomitant]
     Dosage: DAILY
  6. LEVAQUIN [Concomitant]
     Dosage: DOSING STARTED ON 05-FEB-2011
  7. COREG [Concomitant]
     Indication: BLOOD PRESSURE
     Dosage: 1 A DAY
     Route: 048
  8. ACETAMINOPHEN [Concomitant]
     Indication: PAIN
  9. PROMETHAZINE [Concomitant]
     Indication: NAUSEA
     Dosage: AS REQUIRED
  10. TRAMADOL [Concomitant]
     Indication: PAIN
     Dosage: Q12 HOURS

REACTIONS (1)
  - HALLUCINATION [None]
